FAERS Safety Report 19111430 (Version 1)
Quarter: 2021Q2

REPORT INFORMATION
  Report Type: Spontaneous
  Country: US (occurrence: US)
  Receive Date: 20210408
  Receipt Date: 20210408
  Transmission Date: 20210717
  Serious: Yes (Hospitalization)
  Sender: FDA-Public Use
  Company Number: None

PATIENT
  Age: 50 Year
  Sex: Female
  Weight: 61.65 kg

DRUGS (4)
  1. REPATHA [Suspect]
     Active Substance: EVOLOCUMAB
     Indication: BLOOD CHOLESTEROL INCREASED
     Dosage: ?          QUANTITY:1 INJECTION(S);OTHER FREQUENCY:EVERY TWO WEEKS;?
     Route: 058
     Dates: start: 20201217, end: 20210324
  2. SERTRALINE [Concomitant]
     Active Substance: SERTRALINE HYDROCHLORIDE
  3. DOXEPIN [Concomitant]
     Active Substance: DOXEPIN
  4. BELAOMRA [Concomitant]

REACTIONS (11)
  - Night sweats [None]
  - Diarrhoea [None]
  - Nasal discomfort [None]
  - Nausea [None]
  - Flushing [None]
  - Asthenia [None]
  - Myalgia [None]
  - Bone pain [None]
  - Pyrexia [None]
  - Illness [None]
  - Back pain [None]

NARRATIVE: CASE EVENT DATE: 20210326
